FAERS Safety Report 25204902 (Version 2)
Quarter: 2025Q2

REPORT INFORMATION
  Report Type: Spontaneous
  Country: JP (occurrence: JP)
  Receive Date: 20250416
  Receipt Date: 20250429
  Transmission Date: 20250717
  Serious: Yes (Other)
  Sender: BAUSCH AND LOMB
  Company Number: JP-BAUSCHBL-2025BNL006746

PATIENT
  Sex: Female

DRUGS (1)
  1. CARTEOLOL HYDROCHLORIDE [Suspect]
     Active Substance: CARTEOLOL HYDROCHLORIDE
     Indication: Glaucoma
     Route: 064

REACTIONS (2)
  - Deafness unilateral [Unknown]
  - Foetal exposure during pregnancy [Unknown]
